FAERS Safety Report 8550013 (Version 3)
Quarter: 2012Q4

REPORT INFORMATION
  Report Type: 
  Country: US (occurrence: US)
  Receive Date: 20120507
  Receipt Date: 20120927
  Transmission Date: 20130627
  Serious: No
  Sender: FDA-Public Use
  Company Number: US-ASTRAZENECA-2012SE19196

PATIENT
  Age: 68 Year
  Sex: Male

DRUGS (11)
  1. TOPROL XL [Suspect]
     Indication: BLOOD PRESSURE ABNORMAL
     Route: 048
     Dates: start: 1994
  2. LISINOPRIL [Suspect]
     Route: 048
     Dates: start: 20061120
  3. CRESTOR [Suspect]
     Route: 048
  4. ZETIA [Concomitant]
     Route: 048
     Dates: start: 20071226
  5. COUMADIN [Concomitant]
     Route: 048
     Dates: start: 20071226
  6. DIGETEK [Concomitant]
     Route: 048
     Dates: start: 20080602
  7. DIGITOXIN [Concomitant]
     Route: 048
     Dates: start: 20110510
  8. TERAZOSIN HCL [Concomitant]
     Route: 048
     Dates: start: 20110711
  9. DIAZEPAM [Concomitant]
     Route: 048
     Dates: start: 20061020
  10. AMOXIL [Concomitant]
     Route: 048
     Dates: start: 20080812, end: 20110822
  11. PRINIVIL [Concomitant]
     Route: 048
     Dates: start: 20071226

REACTIONS (10)
  - Gastroenteritis viral [Unknown]
  - Prostatitis [Unknown]
  - Rotator cuff syndrome [Unknown]
  - Back pain [Unknown]
  - Nephrolithiasis [Unknown]
  - Type V hyperlipidaemia [Unknown]
  - Acute sinusitis [Unknown]
  - Cough [Unknown]
  - Cardiac disorder [Unknown]
  - Drug prescribing error [Unknown]
